FAERS Safety Report 6525382-6 (Version None)
Quarter: 2010Q1

REPORT INFORMATION
  Report Type: 
  Country: None (occurrence: None)
  Receive Date: 20100104
  Receipt Date: 20091223
  Transmission Date: 20100710
  Serious: Yes (Other)
  Sender: FDA-Public Use
  Company Number: US-ASTRAZENECA-2009SE33317

PATIENT
  Sex: Male

DRUGS (8)
  1. PRILOSEC [Suspect]
     Route: 048
  2. CRESTOR [Suspect]
     Route: 048
  3. CELEXA [Concomitant]
  4. HYDROCODONE [Concomitant]
  5. ATIVAN [Concomitant]
  6. ZANAFLEX [Concomitant]
  7. PLAVIX [Concomitant]
  8. LOVAZA [Concomitant]

REACTIONS (1)
  - LUNG NEOPLASM MALIGNANT [None]
